FAERS Safety Report 20309150 (Version 2)
Quarter: 2022Q2

REPORT INFORMATION
  Report Type: Spontaneous
  Country: US (occurrence: US)
  Receive Date: 20220107
  Receipt Date: 20220406
  Transmission Date: 20220721
  Serious: Yes (Other)
  Sender: FDA-Public Use
  Company Number: US-BAYER-2022A001652

PATIENT
  Age: 44 Year
  Sex: Female

DRUGS (2)
  1. LOTRIMIN ANTIFUNGAL (MICONAZOLE NITRATE) [Suspect]
     Active Substance: MICONAZOLE NITRATE
     Dosage: UNK
     Dates: start: 2014, end: 2020
  2. TINACTIN [Suspect]
     Active Substance: TOLNAFTATE
     Dosage: UNK

REACTIONS (2)
  - Breast cancer female [Unknown]
  - Recalled product administered [None]

NARRATIVE: CASE EVENT DATE: 20160101
